FAERS Safety Report 8389291-2 (Version None)
Quarter: 2012Q2

REPORT INFORMATION
  Report Type: 
  Country: None (occurrence: None)
  Receive Date: 20120528
  Receipt Date: 20120516
  Transmission Date: 20120825
  Serious: Yes (Other)
  Sender: FDA-Public Use
  Company Number: US-ASTRAZENECA-2012SE16854

PATIENT
  Age: 59 Year
  Sex: Female
  Weight: 83 kg

DRUGS (38)
  1. MAXAZIDE [Concomitant]
     Indication: HYPERTENSION
  2. ATENOLOL [Concomitant]
     Indication: HYPERTENSION
  3. ATENOLOL [Concomitant]
     Dates: start: 20100902
  4. FLUCONAZOLE [Concomitant]
     Dates: start: 20090212
  5. BENADRYL [Concomitant]
     Dates: start: 20100902
  6. ALENDRONATE SODIUM [Concomitant]
     Dosage: 70 MG 1 TABLET ONCE A WEEK
     Dates: start: 20100902
  7. EXFORGE [Concomitant]
     Dates: start: 20100902
  8. ZYRTEC-D 12 HOUR [Concomitant]
     Indication: NASAL CONGESTION
     Dosage: 5-120 MG ONCE A DAY
     Dates: start: 20100902
  9. ESTRADERM [Concomitant]
     Dates: start: 20081208
  10. CLONAZEPAM [Concomitant]
  11. CARISOPRODOL [Concomitant]
     Dates: start: 20090203
  12. ASPIRIN [Concomitant]
  13. EXFORGE HCT [Concomitant]
     Indication: HYPERTENSION
     Dosage: 10-160-12.5MG ONCE A DAY
     Dates: start: 20100902
  14. ADVAIR DISKUS 100/50 [Concomitant]
     Dosage: 250-50 MCG/DOSE 1 EVERY 12 HOURS
     Dates: start: 20100902
  15. NEXIUM [Suspect]
     Route: 048
     Dates: start: 20100902
  16. NEXIUM [Suspect]
     Route: 048
     Dates: start: 20110101
  17. VITAMIN E [Concomitant]
     Dosage: 1000 UNIT 3 PILLS DAILY
  18. ATENOLOL [Concomitant]
     Dates: start: 20090407
  19. ZYRTEC-D 12 HOUR [Concomitant]
     Indication: MULTIPLE ALLERGIES
     Dosage: 5-120 MG ONCE A DAY
     Dates: start: 20100902
  20. GLIMEPIRIDE [Concomitant]
  21. IBUPROFEN [Concomitant]
     Dates: start: 20100902
  22. LISINOPRIL [Concomitant]
     Dates: start: 20081205
  23. TYLENOL [Concomitant]
     Dosage: 2 30 500 MG AS DIRECTED
  24. ALBUTEROL SULFATE [Concomitant]
     Dosage: 0.083%ML AS NEEDED
  25. MECLIZINE HCL [Concomitant]
  26. NEXIUM [Suspect]
     Route: 048
     Dates: start: 20090519
  27. POTASSIUM CHLORIDE [Concomitant]
  28. SIMVASTATION [Concomitant]
     Indication: HYPERLIPIDAEMIA
     Dates: start: 20100101
  29. ZOFRAN ODT [Concomitant]
  30. IBUPROFEN [Concomitant]
     Dates: start: 20080826
  31. CITALOPRAM HYDROBROMIDE [Concomitant]
     Dates: start: 20081128
  32. LEVAQUIN [Concomitant]
     Dates: start: 20080918
  33. NEXIUM [Suspect]
     Indication: GASTROOESOPHAGEAL REFLUX DISEASE
     Route: 048
     Dates: start: 20090101, end: 20110101
  34. ROLAIDS [Concomitant]
  35. ESTRADERM [Concomitant]
     Dosage: 0.05MG ONE 24-HOUR PATCH TO SKIN A DAY
     Dates: start: 20100902
  36. HYDROCODONE BITARTRATE AND ACETAMINOPHEN [Concomitant]
     Dosage: 5/500
     Dates: start: 20081128
  37. METRONIDAZOLE [Concomitant]
     Dates: start: 20090218
  38. NASONEX [Concomitant]

REACTIONS (11)
  - VERTIGO [None]
  - TRANSIENT ISCHAEMIC ATTACK [None]
  - CARDIAC DISORDER [None]
  - MIGRAINE [None]
  - DEPRESSION [None]
  - ANXIETY [None]
  - OSTEOPOROSIS [None]
  - VITAMIN D DEFICIENCY [None]
  - CEREBROVASCULAR ACCIDENT [None]
  - FOOT FRACTURE [None]
  - OSTEOARTHRITIS [None]
